FAERS Safety Report 14441537 (Version 2)
Quarter: 2018Q2

REPORT INFORMATION
  Report Type: Report from Study
  Country: GB (occurrence: GB)
  Receive Date: 20180125
  Receipt Date: 20180403
  Transmission Date: 20180711
  Serious: Yes (Hospitalization)
  Sender: FDA-Public Use
  Company Number: GB-PFIZER INC-2018021936

PATIENT
  Weight: 48.8 kg

DRUGS (18)
  1. METOCLOPRAMIDE. [Concomitant]
     Active Substance: METOCLOPRAMIDE
     Indication: VOMITING
     Dosage: 5 MG, 3X/DAY
     Dates: start: 20180103, end: 20180103
  2. PREDNISOLONE. [Concomitant]
     Active Substance: PREDNISOLONE
     Dosage: 1 GTT, 6 TIMES A DAY
     Dates: start: 20180104, end: 20180108
  3. ITRACONAZOLE. [Concomitant]
     Active Substance: ITRACONAZOLE
     Indication: PROPHYLAXIS
     Dosage: 200 MG, IN D./QUOTID/O.D.
  4. FLUDARABINE [Suspect]
     Active Substance: FLUDARABINE PHOSPHATE
     Dosage: UNK, CYCLIC
     Dates: start: 20180103, end: 20180108
  5. HYOSIN [Concomitant]
     Indication: VOMITING
     Dosage: 1 PATCH, CYCLIC (EVERY 72 HOURS)
     Dates: start: 20180103, end: 20180106
  6. FUSIDIC ACID [Concomitant]
     Active Substance: FUSIDIC ACID
     Indication: BALANOPOSTHITIS
     Dosage: 1 APPLICATION, 1X/DAY
     Dates: start: 20171206
  7. ONDANSETRON [Concomitant]
     Active Substance: ONDANSETRON
     Dosage: 8 MG, 3X/DAY
     Dates: start: 20180108
  8. LIPOSOMAL DAUNORUBICIN [Suspect]
     Active Substance: DAUNORUBICIN HYDROCHLORIDE
     Dosage: UNK
  9. COTRIMOXAZOLE [Concomitant]
     Active Substance: SULFAMETHOXAZOLE\TRIMETHOPRIM
     Indication: PROPHYLAXIS
     Dosage: 480 MG, CYCLIC (BD SATURDAY AND SUNDAY)
     Dates: start: 20171127
  10. SENNA [Concomitant]
     Active Substance: SENNA LEAF\SENNOSIDES\SENNOSIDES A AND B
     Indication: CONSTIPATION
     Dosage: 7.5 MG, 2X/DAY
     Dates: start: 20180107, end: 20180108
  11. CYTARABINE. [Suspect]
     Active Substance: CYTARABINE
     Dosage: UNK, CYCLIC
     Dates: start: 20180103, end: 20180108
  12. GEMTUZUMAB OZOGAMICIN [Suspect]
     Active Substance: GEMTUZUMAB OZOGAMICIN
     Dosage: UNK
     Route: 042
  13. GELCLAIR [Concomitant]
     Indication: ORAL PAIN
     Dosage: 1 DOSE, 3X/DAY
     Dates: start: 20180108, end: 20180108
  14. MITOXANTRONE HCL [Suspect]
     Active Substance: MITOXANTRONE HYDROCHLORIDE
     Dosage: UNK
  15. IDARUBICIN HCL [Suspect]
     Active Substance: IDARUBICIN HYDROCHLORIDE
     Dosage: UNK, CYCLIC
     Dates: start: 20180103, end: 20180108
  16. LEVOMEPROMAZINE [Concomitant]
     Active Substance: LEVOMEPROMAZINE
     Indication: VOMITING
     Dosage: 8 MG, 2X/DAY
     Dates: start: 20180104, end: 20180107
  17. ONDANSETRON [Concomitant]
     Active Substance: ONDANSETRON
     Indication: VOMITING
     Dosage: 7.5 MG, 3X/DAY
     Dates: start: 20180103, end: 20180108
  18. CHLORPHENAMINE [Concomitant]
     Active Substance: CHLORPHENIRAMINE MALEATE
     Dosage: 10 MG, 1X/DAY
     Dates: start: 20180108, end: 20180108

REACTIONS (1)
  - Febrile neutropenia [Not Recovered/Not Resolved]

NARRATIVE: CASE EVENT DATE: 20180112
